FAERS Safety Report 21168365 (Version 1)
Quarter: 2022Q3

REPORT INFORMATION
  Report Type: Spontaneous
  Country: DE (occurrence: DE)
  Receive Date: 20220803
  Receipt Date: 20220803
  Transmission Date: 20221027
  Serious: Yes (Hospitalization, Other)
  Sender: FDA-Public Use
  Company Number: DE-NOVARTISPH-NVSC2022DE173635

PATIENT
  Age: 36 Year
  Sex: Female
  Weight: 85 kg

DRUGS (8)
  1. AZATHIOPRINE [Suspect]
     Active Substance: AZATHIOPRINE
     Indication: Colitis ulcerative
     Dosage: 100 MG, QD
     Route: 065
     Dates: start: 20220216, end: 20220516
  2. PREDNISOLONE [Suspect]
     Active Substance: PREDNISOLONE
     Indication: Infection prophylaxis
     Dosage: 12.5 MG, QD
     Route: 065
     Dates: start: 20220318, end: 20220520
  3. STELARA [Suspect]
     Active Substance: USTEKINUMAB
     Indication: Colitis ulcerative
     Dosage: 390 MG , 6 WEEKS ( 1 CYCLE)
     Route: 065
     Dates: start: 20220217
  4. ENTYVIO [Suspect]
     Active Substance: VEDOLIZUMAB
     Indication: Colitis ulcerative
     Dosage: 90 MG
     Route: 065
     Dates: start: 20210625
  5. REMICADE [Suspect]
     Active Substance: INFLIXIMAB
     Indication: Product used for unknown indication
     Dosage: UNK
     Route: 065
     Dates: start: 202201, end: 202202
  6. INFLIXIMAB [Suspect]
     Active Substance: INFLIXIMAB
     Indication: Product used for unknown indication
     Dosage: DOSE: 410 (UNIT UNKNOWN)
     Route: 065
     Dates: start: 20220217
  7. CYCLOSPORINE [Suspect]
     Active Substance: CYCLOSPORINE
     Indication: Colitis ulcerative
     Dosage: 200 MG, Q12H (1-0-1)
     Route: 048
  8. CYCLOSPORINE [Suspect]
     Active Substance: CYCLOSPORINE
     Dosage: UNKNOWN. PERIPHERAL
     Route: 042

REACTIONS (3)
  - Colitis ulcerative [Recovered/Resolved]
  - Ill-defined disorder [Recovering/Resolving]
  - Infection [Recovering/Resolving]
